FAERS Safety Report 10475443 (Version 1)
Quarter: 2014Q3

REPORT INFORMATION
  Report Type: Spontaneous
  Country: US (occurrence: None)
  Receive Date: 20140924
  Receipt Date: 20140924
  Transmission Date: 20150326
  Serious: Yes (Hospitalization)
  Sender: FDA-Public Use
  Company Number: None

PATIENT
  Age: 70 Year
  Sex: Male
  Weight: 94.2 kg

DRUGS (1)
  1. ACETAZOLAMIDE. [Suspect]
     Active Substance: ACETAZOLAMIDE
     Route: 048
     Dates: start: 20130108, end: 20130628

REACTIONS (2)
  - Renal failure [None]
  - Acidosis [None]

NARRATIVE: CASE EVENT DATE: 20130628
